FAERS Safety Report 4998716-1 (Version None)
Quarter: 2006Q2

REPORT INFORMATION
  Report Type: 
  Country: None (occurrence: None)
  Receive Date: 20060510
  Receipt Date: 20060410
  Transmission Date: 20061013
  Serious: Yes (Hospitalization)
  Sender: FDA-Public Use
  Company Number: US-BOEHRINGER INGELHEIM PHARMACEUTICALS, INC.-2006-BP-04267BP

PATIENT
  Age: 73 Year
  Sex: Male

DRUGS (2)
  1. MICARDIS [Suspect]
     Indication: RENAL DISORDER
     Route: 048
     Dates: start: 20060101, end: 20060331
  2. LITHIUM [Concomitant]
     Indication: BIPOLAR DISORDER

REACTIONS (3)
  - JOINT SWELLING [None]
  - OEDEMA PERIPHERAL [None]
  - THROMBOSIS [None]
